FAERS Safety Report 9284158 (Version 1)
Quarter: 2013Q2

REPORT INFORMATION
  Report Type: Spontaneous
  Country: CH (occurrence: CH)
  Receive Date: 20130510
  Receipt Date: 20130510
  Transmission Date: 20140414
  Serious: Yes (Other)
  Sender: FDA-Public Use
  Company Number: CH-BRISTOL-MYERS SQUIBB COMPANY-18853143

PATIENT
  Sex: Male

DRUGS (4)
  1. BELATACEPT [Suspect]
  2. CYCLOSPORIN A [Concomitant]
  3. CYCLOSERINE [Concomitant]
  4. CPT-11 [Concomitant]

REACTIONS (2)
  - Multiple organ transplant rejection [Unknown]
  - Off label use [Unknown]
